FAERS Safety Report 15059487 (Version 1)
Quarter: 2018Q2

REPORT INFORMATION
  Report Type: Spontaneous
  Country: IT (occurrence: IT)
  Receive Date: 20180625
  Receipt Date: 20180625
  Transmission Date: 20180711
  Serious: Yes (Other)
  Sender: FDA-Public Use
  Company Number: IT-BAYER-2018-116100

PATIENT
  Age: 42 Year
  Sex: Female

DRUGS (5)
  1. KOGENATE [Suspect]
     Active Substance: ANTIHEMOPHILIC FACTOR, HUMAN RECOMBINANT
     Indication: PROPHYLAXIS
     Dosage: 2000 U, QOD
     Dates: start: 2017
  2. KOGENATE [Suspect]
     Active Substance: ANTIHEMOPHILIC FACTOR, HUMAN RECOMBINANT
     Indication: PROPHYLAXIS
     Dosage: ON ALTERNATE DAYS, BUT NOT ON SATURDAY AND SUNDAYS
     Dates: end: 2017
  3. KOGENATE [Suspect]
     Active Substance: ANTIHEMOPHILIC FACTOR, HUMAN RECOMBINANT
     Indication: PROPHYLAXIS
     Dosage: 8000 UNITS, 30 MINUTES BEFORE SURGERY
     Dates: end: 201805
  4. KOGENATE [Suspect]
     Active Substance: ANTIHEMOPHILIC FACTOR, HUMAN RECOMBINANT
     Indication: PROPHYLAXIS
     Dosage: 4000 UNITS ONCE A DAY
     Dates: start: 201805
  5. KOGENATE [Suspect]
     Active Substance: ANTIHEMOPHILIC FACTOR, HUMAN RECOMBINANT
     Indication: PROPHYLAXIS
     Dosage: AFTER SURGERY, 4000 UNITS EVERY 12 HOURS
     Dates: start: 201805, end: 201805

REACTIONS (3)
  - Nodule [None]
  - Drug effect incomplete [None]
  - Cholelithiasis [None]

NARRATIVE: CASE EVENT DATE: 2016
